FAERS Safety Report 21135001 (Version 1)
Quarter: 2022Q3

REPORT INFORMATION
  Report Type: Spontaneous
  Country: CN (occurrence: CN)
  Receive Date: 20220727
  Receipt Date: 20220727
  Transmission Date: 20221026
  Serious: Yes (Hospitalization)
  Sender: FDA-Public Use
  Company Number: CN-JNJFOC-20220741460

PATIENT
  Age: 52 Year
  Sex: Female
  Weight: 60 kg

DRUGS (3)
  1. DARZALEX [Suspect]
     Active Substance: DARATUMUMAB
     Indication: Plasma cell myeloma
     Dosage: LATEST ADMINISTRATION DATE : 07-APR-2022 AND 08-APR-2022
     Route: 041
     Dates: start: 20220331
  2. CYTARABINE HYDROCHLORIDE [Suspect]
     Active Substance: CYTARABINE HYDROCHLORIDE
     Indication: Plasma cell myeloma
     Dosage: EVERY 12 H
     Route: 041
     Dates: start: 20220401, end: 20220404
  3. ETOPOSIDE [Suspect]
     Active Substance: ETOPOSIDE
     Indication: Plasma cell myeloma
     Route: 041
     Dates: start: 20220401, end: 20220404

REACTIONS (4)
  - Myelosuppression [Recovering/Resolving]
  - Pyrexia [Unknown]
  - Cough [Unknown]
  - Tinnitus [Unknown]

NARRATIVE: CASE EVENT DATE: 20220404
